FAERS Safety Report 5519405-0 (Version None)
Quarter: 2007Q4

REPORT INFORMATION
  Report Type: 
  Country: None (occurrence: None)
  Receive Date: 20071116
  Receipt Date: 20071106
  Transmission Date: 20080405
  Serious: Yes (Hospitalization, Other)
  Sender: FDA-Public Use
  Company Number: US-WYE-H01181607

PATIENT
  Sex: Female

DRUGS (2)
  1. CORDARONE [Suspect]
  2. PACERONE [Suspect]

REACTIONS (2)
  - HYPERPARATHYROIDISM [None]
  - HYPERTHYROIDISM [None]
